FAERS Safety Report 24940142 (Version 2)
Quarter: 2025Q1

REPORT INFORMATION
  Report Type: Spontaneous
  Country: US (occurrence: US)
  Receive Date: 20250207
  Receipt Date: 20250304
  Transmission Date: 20250409
  Serious: No
  Sender: BRISTOL-MYERS SQUIBB COMPANY
  Company Number: US-BRISTOL-MYERS SQUIBB COMPANY-2025-018565

PATIENT
  Age: 70 Year
  Sex: Male

DRUGS (4)
  1. POMALYST [Suspect]
     Active Substance: POMALIDOMIDE
     Indication: Plasma cell myeloma
     Route: 048
     Dates: start: 202408
  2. POMALYST [Suspect]
     Active Substance: POMALIDOMIDE
     Indication: Neoplasm malignant
     Dosage: STRENGTH-1 MG
     Route: 048
     Dates: start: 202408
  3. POMALYST [Suspect]
     Active Substance: POMALIDOMIDE
     Indication: Metastases to bone
  4. NINLARO [Concomitant]
     Active Substance: IXAZOMIB CITRATE
     Indication: Product used for unknown indication
     Dosage: PATIENT TAKES NINLARO EVERY MONDAY ON DAYS 1, 8, AND 15 OF 28 DAY CYCLE.

REACTIONS (8)
  - Headache [Unknown]
  - Pain in extremity [Unknown]
  - Paraesthesia [Unknown]
  - Alopecia [Unknown]
  - Hypoaesthesia [Unknown]
  - Neck pain [Unknown]
  - Burning sensation [Unknown]
  - Peripheral swelling [Unknown]
